FAERS Safety Report 13474271 (Version 3)
Quarter: 2017Q3

REPORT INFORMATION
  Report Type: Spontaneous
  Country: JP (occurrence: JP)
  Receive Date: 20170424
  Receipt Date: 20170811
  Transmission Date: 20171127
  Serious: Yes (Life-Threatening, Hospitalization)
  Sender: FDA-Public Use
  Company Number: JP-JNJFOC-20170422923

PATIENT
  Age: 74 Year
  Sex: Male
  Weight: 73 kg

DRUGS (16)
  1. XARELTO [Suspect]
     Active Substance: RIVAROXABAN
     Indication: CEREBRAL INFARCTION
     Route: 048
     Dates: start: 20170418, end: 20170419
  2. XARELTO [Suspect]
     Active Substance: RIVAROXABAN
     Indication: HEMIPLEGIA
     Route: 048
     Dates: start: 20170405, end: 20170406
  3. VERAPAMIL HYDROCHLORIDE. [Concomitant]
     Active Substance: VERAPAMIL HYDROCHLORIDE
     Indication: ARRHYTHMIA
     Route: 050
     Dates: start: 20170407
  4. XARELTO [Suspect]
     Active Substance: RIVAROXABAN
     Indication: CEREBRAL INFARCTION
     Route: 048
     Dates: start: 20170405, end: 20170406
  5. XARELTO [Suspect]
     Active Substance: RIVAROXABAN
     Indication: MICROEMBOLISM
     Route: 048
     Dates: start: 20170418, end: 20170419
  6. MAINTATE [Concomitant]
     Active Substance: BISOPROLOL FUMARATE
     Indication: HYPERTENSION
     Route: 050
     Dates: start: 20170414
  7. XARELTO [Suspect]
     Active Substance: RIVAROXABAN
     Indication: CEREBRAL INFARCTION
     Route: 048
     Dates: start: 20170410, end: 20170413
  8. XARELTO [Suspect]
     Active Substance: RIVAROXABAN
     Indication: MICROEMBOLISM
     Route: 048
     Dates: start: 20170405, end: 20170406
  9. LIPITOR [Concomitant]
     Active Substance: ATORVASTATIN CALCIUM
     Indication: HYPERLIPIDAEMIA
     Route: 041
     Dates: start: 20170405
  10. AZILSARTAN [Concomitant]
     Active Substance: AZILSARTAN KAMEDOXOMIL
     Indication: HYPERTENSION
     Route: 050
     Dates: start: 20170405
  11. XARELTO [Suspect]
     Active Substance: RIVAROXABAN
     Indication: HEMIPLEGIA
     Route: 048
     Dates: start: 20170418, end: 20170419
  12. LANIRAPID [Concomitant]
     Active Substance: METILDIGOXIN
     Indication: ARRHYTHMIA
     Route: 050
     Dates: start: 20170407
  13. XARELTO [Suspect]
     Active Substance: RIVAROXABAN
     Indication: HEMIPLEGIA
     Route: 048
     Dates: start: 20170410, end: 20170413
  14. CILOSTAZOL. [Suspect]
     Active Substance: CILOSTAZOL
     Indication: CEREBRAL INFARCTION
     Route: 050
     Dates: start: 20170405
  15. XARELTO [Suspect]
     Active Substance: RIVAROXABAN
     Indication: MICROEMBOLISM
     Route: 048
     Dates: start: 20170410, end: 20170413
  16. CATACLOT [Concomitant]
     Route: 041
     Dates: start: 20170406, end: 20170413

REACTIONS (7)
  - Epistaxis [Recovered/Resolved]
  - Depressed level of consciousness [Recovering/Resolving]
  - Epistaxis [Recovered/Resolved]
  - Haematuria [Recovering/Resolving]
  - Respiratory disorder [Recovering/Resolving]
  - Cerebral infarction [Not Recovered/Not Resolved]
  - Off label use [Unknown]

NARRATIVE: CASE EVENT DATE: 20170407
